FAERS Safety Report 5990219-0 (Version None)
Quarter: 2008Q4

REPORT INFORMATION
  Report Type: 
  Country: None (occurrence: None)
  Receive Date: 20081209
  Receipt Date: 20081126
  Transmission Date: 20090506
  Serious: Yes (Hospitalization)
  Sender: FDA-Public Use
  Company Number: 2008-04523

PATIENT
  Age: 39 Year
  Sex: Female
  Weight: 75 kg

DRUGS (10)
  1. VELCADE [Suspect]
     Indication: MULTIPLE MYELOMA
     Dosage: 2.4 MG, INTRAVENOUS
     Route: 042
     Dates: start: 20081009, end: 20081110
  2. CYCLOPHOSPHAMIDE [Suspect]
     Indication: MULTIPLE MYELOMA
     Dosage: 1710 MG, INTRAVENOUS
     Route: 042
     Dates: start: 20081009, end: 20081031
  3. DEXAMETHASONE [Suspect]
     Indication: MULTIPLE MYELOMA
     Dosage: 40 MG, INTRAVENOUS
     Route: 042
     Dates: start: 20081009, end: 20081111
  4. VALORON N (NALOXONE HYDROCHLORIDE, TILIDINE HYDROCHLORIDE) [Concomitant]
  5. NOVALGIN (METAMIZOLE SODIUM) [Concomitant]
  6. PANTOPRAZOLE SODIUM [Concomitant]
  7. METOCLOPRAMIDE [Concomitant]
  8. ALLOPURINOL [Concomitant]
  9. IBUPROFEN [Concomitant]
  10. ACYCLOVIR [Concomitant]

REACTIONS (2)
  - MUSCULOSKELETAL CHEST PAIN [None]
  - NEOPLASM PROGRESSION [None]
